FAERS Safety Report 6168580-6 (Version None)
Quarter: 2009Q2

REPORT INFORMATION
  Report Type: 
  Country: None (occurrence: None)
  Receive Date: 20090423
  Receipt Date: 20090416
  Transmission Date: 20091009
  Serious: Yes (Other)
  Sender: FDA-Public Use
  Company Number: 2009SP004003

PATIENT
  Age: 66 Year
  Sex: Female

DRUGS (8)
  1. NOXAFIL [Suspect]
     Indication: ACUTE MYELOID LEUKAEMIA
     Dosage: 200 MG;TID;UNK
     Dates: start: 20090123
  2. NOXAFIL [Suspect]
     Indication: ANTIBIOTIC PROPHYLAXIS
     Dosage: 200 MG;TID;UNK
     Dates: start: 20090123
  3. OMEPRAZOLE [Suspect]
     Dosage: ;UNK;UNK
     Dates: start: 20090206
  4. VALTREX [Concomitant]
  5. CALCICHEW D3 [Concomitant]
  6. ALLOPURINOL [Concomitant]
  7. KIN [Concomitant]
  8. MYCOSTATIN [Concomitant]

REACTIONS (2)
  - DRUG INTERACTION [None]
  - FUSARIUM INFECTION [None]
